FAERS Safety Report 5908224-9 (Version None)
Quarter: 2008Q4

REPORT INFORMATION
  Report Type: 
  Country: None (occurrence: None)
  Receive Date: 20081006
  Receipt Date: 20080926
  Transmission Date: 20090506
  Serious: Yes (Hospitalization, Other)
  Sender: FDA-Public Use
  Company Number: FR-JNJFOC-20080803824

PATIENT
  Sex: Female
  Weight: 44 kg

DRUGS (2)
  1. RISPERDAL [Suspect]
     Indication: PSYCHOTIC DISORDER
     Route: 048
  2. RIVOTRIL [Concomitant]
     Indication: ANXIETY
     Route: 048

REACTIONS (2)
  - CARDIAC DISORDER [None]
  - TACHYCARDIA [None]
